FAERS Safety Report 8210790-8 (Version None)
Quarter: 2012Q1

REPORT INFORMATION
  Report Type: 
  Country: None (occurrence: None)
  Receive Date: 20120315
  Receipt Date: 20120308
  Transmission Date: 20120608
  Serious: No
  Sender: FDA-Public Use
  Company Number: US-BIOGENIDEC-2012BI008502

PATIENT
  Age: 42 Year
  Sex: Female

DRUGS (1)
  1. TYSABRI [Suspect]
     Indication: MULTIPLE SCLEROSIS
     Route: 042
     Dates: start: 20120111

REACTIONS (11)
  - ANXIETY [None]
  - SERUM SEROTONIN INCREASED [None]
  - PAIN IN EXTREMITY [None]
  - DIZZINESS [None]
  - PALPITATIONS [None]
  - CHEST PAIN [None]
  - DEPRESSION [None]
  - POLLAKIURIA [None]
  - MEMORY IMPAIRMENT [None]
  - DISORIENTATION [None]
  - FATIGUE [None]
